FAERS Safety Report 4873401-5 (Version None)
Quarter: 2005Q4

REPORT INFORMATION
  Report Type: 
  Country: None (occurrence: None)
  Receive Date: 20051201
  Receipt Date: 20050708
  Transmission Date: 20060501
  Serious: No
  Sender: FDA-Public Use
  Company Number: 2005PV000311

PATIENT
  Age: 71 Year
  Sex: Male
  Weight: 129.2752 kg

DRUGS (6)
  1. BYETTA [Suspect]
     Indication: DIABETES MELLITUS NON-INSULIN-DEPENDENT
     Dosage: 5 UG;BID;SC
     Route: 058
     Dates: start: 20050613
  2. QUINAPRIL [Concomitant]
  3. SYNTHROID [Concomitant]
  4. LIPITOR [Concomitant]
  5. HUMULIN 70/30 [Concomitant]
  6. AVANDIA [Concomitant]

REACTIONS (2)
  - JOINT STIFFNESS [None]
  - MYALGIA [None]
